FAERS Safety Report 5993842-2 (Version None)
Quarter: 2008Q4

REPORT INFORMATION
  Report Type: 
  Country: None (occurrence: None)
  Receive Date: 20081212
  Receipt Date: 20081014
  Transmission Date: 20090506
  Serious: No
  Sender: FDA-Public Use
  Company Number: PR-ABBOTT-08P-131-0477287-00

PATIENT
  Sex: Male
  Weight: 38.59 kg

DRUGS (5)
  1. HUMIRA [Suspect]
     Indication: CROHN'S DISEASE
  2. GLIPIZIDE [Concomitant]
     Indication: DIABETES MELLITUS
     Route: 048
  3. FLUCONAZOLE [Concomitant]
     Indication: ORAL FUNGAL INFECTION
     Route: 048
  4. ACTOBEL [Concomitant]
     Indication: OSTEOPOROSIS
     Route: 048
  5. CALCIUM CARBONATE [Concomitant]
     Indication: OSTEOPOROSIS
     Route: 048

REACTIONS (5)
  - ABDOMINAL PAIN UPPER [None]
  - FEELING COLD [None]
  - FUNGAL INFECTION [None]
  - HEADACHE [None]
  - HYPERHIDROSIS [None]
